FAERS Safety Report 4842327-5 (Version None)
Quarter: 2005Q4

REPORT INFORMATION
  Report Type: 
  Country: None (occurrence: None)
  Receive Date: 20051129
  Receipt Date: 20051116
  Transmission Date: 20060501
  Serious: Yes (Life-Threatening)
  Sender: FDA-Public Use
  Company Number: 2005156931

PATIENT
  Sex: Female

DRUGS (2)
  1. MYCOBUTIN [Suspect]
     Indication: INFECTION
     Dosage: 600 MG (150 MG, 2 IN 1 D), ORAL
     Route: 048
  2. THERAPEUTIC RADIOPHARMACEUTICALS (THERAPEUTIC RADIOPHARMACEUTICALS ) [Concomitant]

REACTIONS (2)
  - BONE MARROW DISORDER [None]
  - WHITE BLOOD CELL MORPHOLOGY ABNORMAL [None]
